FAERS Safety Report 7287146-8 (Version None)
Quarter: 2010Q4

REPORT INFORMATION
  Report Type: 
  Country: None (occurrence: None)
  Receive Date: 20101222
  Receipt Date: 20101115
  Transmission Date: 20110411
  Serious: Yes (Other)
  Sender: FDA-Public Use
  Company Number: US-000126

PATIENT
  Sex: Male
  Weight: 76.5 kg

DRUGS (2)
  1. ZENPEP [Suspect]
     Indication: CYSTIC FIBROSIS
     Dosage: (ORAL)
     Route: 048
     Dates: start: 20100801
  2. PROTONIX [Concomitant]

REACTIONS (7)
  - ABDOMINAL PAIN [None]
  - CONVULSION [None]
  - CYSTIC FIBROSIS [None]
  - DIARRHOEA [None]
  - DRUG INEFFECTIVE [None]
  - MALAISE [None]
  - WEIGHT DECREASED [None]
